FAERS Safety Report 6503252-7 (Version None)
Quarter: 2009Q4

REPORT INFORMATION
  Report Type: 
  Country: None (occurrence: None)
  Receive Date: 20091201
  Receipt Date: 20091019
  Transmission Date: 20100525
  Serious: Yes (Other)
  Sender: FDA-Public Use
  Company Number: 2009-200084-NL

PATIENT
  Age: 36 Year
  Sex: Female
  Weight: 96.1626 kg

DRUGS (1)
  1. NUVARING [Suspect]
     Indication: CONTRACEPTION
     Dosage: 1 DF ; QM ; VAG
     Route: 067
     Dates: start: 20061001, end: 20070201

REACTIONS (4)
  - BREAST PAIN [None]
  - DEEP VEIN THROMBOSIS [None]
  - DYSURIA [None]
  - VULVOVAGINAL PRURITUS [None]
